FAERS Safety Report 17419192 (Version 1)
Quarter: 2020Q1

REPORT INFORMATION
  Report Type: Spontaneous
  Country: US (occurrence: US)
  Receive Date: 20200214
  Receipt Date: 20200214
  Transmission Date: 20200409
  Serious: Yes (Hospitalization)
  Sender: FDA-Public Use
  Company Number: None

PATIENT
  Age: 65 Year
  Sex: Female
  Weight: 69 kg

DRUGS (16)
  1. DICLOFENAC 1% GEL [Concomitant]
     Active Substance: DICLOFENAC
  2. GABAPENTIN 100 MG [Concomitant]
     Active Substance: GABAPENTIN
  3. ALBUTEROL INH [Concomitant]
     Active Substance: ALBUTEROL
  4. LEVOTHYROXINE 50 MCG [Concomitant]
     Active Substance: LEVOTHYROXINE
  5. ACETAMINOPHEN 500 MG [Concomitant]
     Active Substance: ACETAMINOPHEN
  6. CHOLECALCIFEROL 2000 UNITS [Concomitant]
  7. LEVOTHYROXINE 75 MCG [Concomitant]
  8. METOPROLOL XL 50 MG [Concomitant]
  9. ONDANSETRON. [Concomitant]
     Active Substance: ONDANSETRON
  10. INSULIN ASPART [Concomitant]
     Active Substance: INSULIN ASPART
  11. LEVEMIR [Concomitant]
     Active Substance: INSULIN DETEMIR
  12. ALTEPLASE. [Suspect]
     Active Substance: ALTEPLASE
     Indication: CORONARY ARTERY OCCLUSION
     Dosage: ?          OTHER FREQUENCY:CONTINUOUS;?
     Route: 041
  13. ASPIRIN 325 MG [Concomitant]
     Active Substance: ASPIRIN
  14. LIDOCAINE 5% PATCH [Concomitant]
     Active Substance: LIDOCAINE
  15. PRAVASTATIN 40 MG [Concomitant]
     Active Substance: PRAVASTATIN
  16. HEPARIN [Suspect]
     Active Substance: HEPARIN SODIUM
     Dosage: ?          OTHER FREQUENCY:CONTINUOUS;?
     Route: 041

REACTIONS (6)
  - Retroperitoneal haematoma [None]
  - Vomiting [None]
  - Post procedural complication [None]
  - Nausea [None]
  - Adverse drug reaction [None]
  - Haematoma [None]

NARRATIVE: CASE EVENT DATE: 20190724
